FAERS Safety Report 9016824 (Version 1)
Quarter: 2013Q1

REPORT INFORMATION
  Report Type: Spontaneous
  Country: US (occurrence: US)
  Receive Date: 20130117
  Receipt Date: 20130117
  Transmission Date: 20140127
  Serious: Yes (Death)
  Sender: FDA-Public Use
  Company Number: US-ELI_LILLY_AND_COMPANY-US201301003113

PATIENT
  Age: 43 Year
  Sex: Female

DRUGS (3)
  1. CYMBALTA [Suspect]
     Indication: PAIN
     Dosage: 30 MG, QD
     Dates: start: 20121011
  2. CYMBALTA [Suspect]
     Dosage: 30 MG, BID
  3. LORTAB [Concomitant]
     Dosage: UNK, UNKNOWN

REACTIONS (1)
  - Death [Fatal]
